FAERS Safety Report 6634935-6 (Version None)
Quarter: 2010Q1

REPORT INFORMATION
  Report Type: 
  Country: None (occurrence: None)
  Receive Date: 20100315
  Receipt Date: 20100310
  Transmission Date: 20100710
  Serious: Yes (Hospitalization)
  Sender: FDA-Public Use
  Company Number: JP-SANOFI-AVENTIS-2010SA011270

PATIENT
  Age: 89 Year
  Sex: Male

DRUGS (6)
  1. LASIX [Suspect]
     Indication: HYPERTENSION
     Route: 048
     Dates: start: 20100222, end: 20100226
  2. LASIX [Suspect]
     Route: 048
     Dates: start: 20100227
  3. ALDACTONE [Concomitant]
     Indication: HYPERTENSION
     Route: 048
     Dates: end: 20100226
  4. ALDACTONE [Concomitant]
     Route: 048
     Dates: start: 20100227
  5. ADALAT [Concomitant]
     Indication: HYPERTENSION
     Route: 048
  6. PLAVIX [Concomitant]
     Indication: CEREBRAL INFARCTION
     Route: 048

REACTIONS (2)
  - DEHYDRATION [None]
  - FEELING ABNORMAL [None]
